FAERS Safety Report 6524125-X (Version None)
Quarter: 2009Q4

REPORT INFORMATION
  Report Type: 
  Country: None (occurrence: None)
  Receive Date: 20091230
  Receipt Date: 20091230
  Transmission Date: 20100525
  Serious: Yes (Life-Threatening, Hospitalization)
  Sender: FDA-Public Use
  Company Number: None

PATIENT
  Age: 83 Year
  Sex: Female
  Weight: 47.6277 kg

DRUGS (8)
  1. FLAGYL [Suspect]
     Indication: CLOSTRIDIAL INFECTION
     Dosage: 500 MG 2X DAY FOR 10 DAYS NOV. 7 - NOV 17 AGAIN 500 MG 3X DAY FOR 6 DAYS NOV. 20 - NOV 26, 2009
     Dates: start: 20091107, end: 20091126
  2. FLAGYL [Suspect]
     Indication: URINARY TRACT INFECTION
     Dosage: 500 MG 2X DAY FOR 10 DAYS NOV. 7 - NOV 17 AGAIN 500 MG 3X DAY FOR 6 DAYS NOV. 20 - NOV 26, 2009
     Dates: start: 20091107, end: 20091126
  3. LIPITOR [Concomitant]
  4. NORVASC [Concomitant]
  5. DIOVAN [Concomitant]
  6. EVISTA [Concomitant]
  7. ZOLOFT [Concomitant]
  8. REMERON [Concomitant]

REACTIONS (6)
  - ANAEMIA [None]
  - DECREASED APPETITE [None]
  - DEHYDRATION [None]
  - DYSGEUSIA [None]
  - EATING DISORDER [None]
  - WEIGHT DECREASED [None]
